FAERS Safety Report 8131881-6 (Version None)
Quarter: 2012Q1

REPORT INFORMATION
  Report Type: 
  Country: None (occurrence: None)
  Receive Date: 20120213
  Receipt Date: 20120206
  Transmission Date: 20120608
  Serious: No
  Sender: FDA-Public Use
  Company Number: US-TEVA-321282USA

PATIENT

DRUGS (1)
  1. PLAN B ONE-STEP [Suspect]
     Route: 048

REACTIONS (5)
  - DRUG INEFFECTIVE [None]
  - BREAST TENDERNESS [None]
  - BREAST PAIN [None]
  - PREGNANCY AFTER POST COITAL CONTRACEPTION [None]
  - VAGINAL HAEMORRHAGE [None]
